FAERS Safety Report 25685545 (Version 3)
Quarter: 2025Q4

REPORT INFORMATION
  Report Type: Spontaneous
  Country: DO (occurrence: DO)
  Receive Date: 20250815
  Receipt Date: 20251010
  Transmission Date: 20260118
  Serious: No
  Sender: PFIZER
  Company Number: DO-PFIZER INC-PV202500097035

PATIENT
  Age: 15 Year
  Sex: Male

DRUGS (1)
  1. GENOTROPIN [Suspect]
     Active Substance: SOMATROPIN
     Dosage: 1.3 MG, 1X/DAY

REACTIONS (5)
  - Eating disorder [Unknown]
  - Abdominal discomfort [Unknown]
  - Food intolerance [Unknown]
  - Device physical property issue [Unknown]
  - Device information output issue [Unknown]
